FAERS Safety Report 19055606 (Version 1)
Quarter: 2021Q1

REPORT INFORMATION
  Report Type: Spontaneous
  Country: US (occurrence: US)
  Receive Date: 20210325
  Receipt Date: 20210325
  Transmission Date: 20210420
  Serious: No
  Sender: FDA-Public Use
  Company Number: US-STRIDES ARCOLAB LIMITED-2020SP010523

PATIENT
  Age: 33 Year
  Sex: Female

DRUGS (20)
  1. HYDROMORPHONE [Concomitant]
     Active Substance: HYDROMORPHONE
     Indication: PAIN MANAGEMENT
     Dosage: UNK
     Route: 065
  2. METHADONE [Concomitant]
     Active Substance: METHADONE HYDROCHLORIDE
     Dosage: 10 MILLIGRAM PER DAY
     Route: 065
  3. ONDANSETRON [Suspect]
     Active Substance: ONDANSETRON
     Indication: ILEUS
     Dosage: UNK
     Route: 065
  4. SUBOXONE [Concomitant]
     Active Substance: BUPRENORPHINE HYDROCHLORIDE\NALOXONE HYDROCHLORIDE
     Indication: ANXIETY
     Dosage: 8 TO 2 MG TABLET, Q8H
     Route: 065
  5. ACETAMINOPHEN. [Concomitant]
     Active Substance: ACETAMINOPHEN
     Indication: ILEUS
     Dosage: UNK
     Route: 065
  6. METRONIDAZOLE. [Suspect]
     Active Substance: METRONIDAZOLE
     Indication: ILEUS
     Dosage: UNK
     Route: 065
  7. LORAZEPAM. [Suspect]
     Active Substance: LORAZEPAM
     Indication: ILEUS
     Dosage: UNK
     Route: 065
  8. ALBUTEROL [SALBUTAMOL] [Concomitant]
     Active Substance: ALBUTEROL
     Indication: PRODUCT USED FOR UNKNOWN INDICATION
     Dosage: UNK
     Route: 065
  9. METHADONE [Concomitant]
     Active Substance: METHADONE HYDROCHLORIDE
     Indication: PAIN MANAGEMENT
     Dosage: 210 MILLIGRAM PER DAY
     Route: 065
  10. CEFEPIME [Concomitant]
     Active Substance: CEFEPIME HYDROCHLORIDE
     Indication: ILEUS
     Dosage: UNK
     Route: 065
  11. KETOROLAC [Concomitant]
     Active Substance: KETOROLAC TROMETHAMINE
     Indication: ILEUS
     Dosage: UNK
     Route: 065
  12. FAMOTIDINE. [Concomitant]
     Active Substance: FAMOTIDINE
     Indication: ILEUS
     Dosage: UNK
     Route: 065
  13. PHYTONADIONE. [Concomitant]
     Active Substance: PHYTONADIONE
     Indication: ILEUS
     Dosage: UNK
     Route: 065
  14. CALCIUM GLUCONATE. [Suspect]
     Active Substance: CALCIUM GLUCONATE
     Indication: ILEUS
     Dosage: UNK
     Route: 065
  15. PANTOPRAZOLE [Concomitant]
     Active Substance: PANTOPRAZOLE
     Indication: ILEUS
     Dosage: UNK
     Route: 065
  16. QUETIAPINE. [Concomitant]
     Active Substance: QUETIAPINE
     Indication: ILEUS
     Dosage: UNK
     Route: 065
  17. HYDROMORPHONE [Concomitant]
     Active Substance: HYDROMORPHONE
     Dosage: 2 MILLIGRAM, EVERY 8 HRS
     Route: 065
  18. ENEMA [SODIUM CHLORIDE] [Concomitant]
     Indication: ILEUS
     Dosage: UNK
     Route: 065
  19. METHADONE [Concomitant]
     Active Substance: METHADONE HYDROCHLORIDE
     Dosage: 80 MILLIGRAM PER DAY
     Route: 065
  20. SUBOXONE [Concomitant]
     Active Substance: BUPRENORPHINE HYDROCHLORIDE\NALOXONE HYDROCHLORIDE
     Indication: DISCOMFORT
     Dosage: 8 TO 2 MG TABLET, Q8H
     Route: 065

REACTIONS (1)
  - Constipation [Unknown]
